FAERS Safety Report 21178048 (Version 1)
Quarter: 2022Q3

REPORT INFORMATION
  Report Type: Spontaneous
  Country: US (occurrence: US)
  Receive Date: 20220805
  Receipt Date: 20220805
  Transmission Date: 20221026
  Serious: Yes (Other)
  Sender: FDA-Public Use
  Company Number: US-drreddys-LIT/USA/22/0152987

PATIENT
  Age: 11 Month
  Sex: Male

DRUGS (6)
  1. THIOTEPA [Suspect]
     Active Substance: THIOTEPA
     Indication: Osteoma cutis
     Dosage: HIGH-DOSE
  2. CARBOPLATIN [Suspect]
     Active Substance: CARBOPLATIN
     Indication: Osteoma cutis
     Dosage: HIGH-DOSE
  3. ETOPOSIDE [Suspect]
     Active Substance: ETOPOSIDE
     Indication: Osteoma cutis
  4. CYCLOPHOSPHAMIDE [Suspect]
     Active Substance: CYCLOPHOSPHAMIDE
     Indication: Osteoma cutis
  5. VINCRISTINE [Suspect]
     Active Substance: VINCRISTINE
     Indication: Osteoma cutis
  6. CISPLATIN [Suspect]
     Active Substance: CISPLATIN
     Indication: Osteoma cutis

REACTIONS (3)
  - Mucosal inflammation [Unknown]
  - Myelosuppression [Unknown]
  - Dysphagia [Unknown]
